FAERS Safety Report 5324079-8 (Version None)
Quarter: 2007Q2

REPORT INFORMATION
  Report Type: 
  Country: None (occurrence: None)
  Receive Date: 20070507
  Receipt Date: 20070424
  Transmission Date: 20071010
  Serious: Yes (Hospitalization)
  Sender: FDA-Public Use
  Company Number: GXKR2007GB03785

PATIENT
  Age: 9 Year
  Sex: Female

DRUGS (1)
  1. OMNITROPE(NGX)(SOMATROPIN)UNKNOWN [Suspect]
     Indication: TURNER'S SYNDROME
     Dosage: INJECTION NOS

REACTIONS (1)
  - THROMBOCYTOPENIC PURPURA [None]
